FAERS Safety Report 8514582-1 (Version None)
Quarter: 2012Q3

REPORT INFORMATION
  Report Type: 
  Country: None (occurrence: None)
  Receive Date: 20120717
  Receipt Date: 20120712
  Transmission Date: 20120928
  Serious: Yes (Hospitalization)
  Sender: FDA-Public Use
  Company Number: US-JNJFOC-20120403022

PATIENT
  Sex: Female
  Weight: 48.3 kg

DRUGS (10)
  1. METHOTREXATE [Concomitant]
  2. FOLIC ACID [Concomitant]
  3. ONDANSETRON [Concomitant]
  4. CELECOXIB [Concomitant]
  5. REMICADE [Suspect]
     Route: 042
  6. METHOTREXATE [Concomitant]
     Dates: start: 20120401
  7. REMICADE [Suspect]
     Indication: INFLAMMATORY BOWEL DISEASE
     Route: 042
  8. REMICADE [Suspect]
     Dosage: 3RD INDUCTION DOSE
     Route: 042
     Dates: start: 20120403
  9. LANSOPRAZOLE [Concomitant]
  10. CHOLECALCIFEROL [Concomitant]

REACTIONS (1)
  - SMALL INTESTINAL OBSTRUCTION [None]
